FAERS Safety Report 14615413 (Version 2)
Quarter: 2018Q1

REPORT INFORMATION
  Report Type: Report from Study
  Country: None (occurrence: US)
  Receive Date: 20180308
  Receipt Date: 20180319
  Transmission Date: 20180509
  Serious: Yes (Hospitalization)
  Sender: FDA-Public Use
  Company Number: US-ABBVIE-18K-163-2279082-00

PATIENT
  Age: 51 Year
  Sex: Male
  Weight: 227 kg

DRUGS (1)
  1. HUMIRA [Suspect]
     Active Substance: ADALIMUMAB
     Indication: PSORIASIS
     Route: 058
     Dates: start: 20171128, end: 20180220

REACTIONS (6)
  - Rash [Recovering/Resolving]
  - Limb mass [Recovering/Resolving]
  - Cellulitis [Recovering/Resolving]
  - Influenza [Recovering/Resolving]
  - Pruritus [Recovering/Resolving]
  - Pain [Recovering/Resolving]

NARRATIVE: CASE EVENT DATE: 201802
